FAERS Safety Report 8053686-7 (Version None)
Quarter: 2012Q1

REPORT INFORMATION
  Report Type: 
  Country: None (occurrence: None)
  Receive Date: 20120118
  Receipt Date: 20120112
  Transmission Date: 20120608
  Serious: Yes (Hospitalization)
  Sender: FDA-Public Use
  Company Number: TH-ABBOTT-12P-155-0892954-00

PATIENT
  Age: 33 Year
  Sex: Female

DRUGS (3)
  1. STAVUDINE [Concomitant]
     Indication: PRODUCT USED FOR UNKNOWN INDICATION
     Route: 048
     Dates: start: 20100706, end: 20100723
  2. LAMIVUDINE [Concomitant]
     Indication: PRODUCT USED FOR UNKNOWN INDICATION
     Route: 048
     Dates: start: 20100706, end: 20100723
  3. KALETRA [Suspect]
     Indication: PRODUCT USED FOR UNKNOWN INDICATION
     Route: 048
     Dates: start: 20100706, end: 20100723

REACTIONS (3)
  - RASH MACULO-PAPULAR [None]
  - FACE OEDEMA [None]
  - OEDEMA MOUTH [None]
